FAERS Safety Report 7835092-0 (Version None)
Quarter: 2011Q4

REPORT INFORMATION
  Report Type: 
  Country: None (occurrence: None)
  Receive Date: 20111024
  Receipt Date: 20111011
  Transmission Date: 20120403
  Serious: Yes (Hospitalization, Other)
  Sender: FDA-Public Use
  Company Number: US-ELI_LILLY_AND_COMPANY-US201110003242

PATIENT
  Sex: Female

DRUGS (1)
  1. CYMBALTA [Suspect]
     Dosage: 60 MG, QD

REACTIONS (4)
  - PNEUMONIA [None]
  - MALAISE [None]
  - WRONG DRUG ADMINISTERED [None]
  - MENTAL DISORDER [None]
